FAERS Safety Report 11064407 (Version 2)
Quarter: 2015Q2

REPORT INFORMATION
  Report Type: Spontaneous
  Country: JP (occurrence: JP)
  Receive Date: 20150424
  Receipt Date: 20150605
  Transmission Date: 20150821
  Serious: Yes (Hospitalization)
  Sender: FDA-Public Use
  Company Number: JP-ASTRAZENECA-2015SE38516

PATIENT
  Age: 80 Year
  Sex: Male

DRUGS (2)
  1. MUNOBAL [Suspect]
     Active Substance: FELODIPINE
     Route: 048
  2. CLARITHROMYCIN. [Concomitant]
     Active Substance: CLARITHROMYCIN

REACTIONS (2)
  - Acute kidney injury [Unknown]
  - Blood pressure decreased [Unknown]
